FAERS Safety Report 21538027 (Version 1)
Quarter: 2022Q4

REPORT INFORMATION
  Report Type: Spontaneous
  Country: US (occurrence: None)
  Receive Date: 20221101
  Receipt Date: 20221101
  Transmission Date: 20230113
  Serious: Yes (Hospitalization)
  Sender: FDA-Public Use
  Company Number: None

PATIENT
  Sex: Male
  Weight: 62.5 kg

DRUGS (3)
  1. CISPLATIN [Suspect]
     Active Substance: CISPLATIN
     Dates: end: 20180518
  2. GEMCITABINE HYDROCHLORIDE [Suspect]
     Active Substance: GEMCITABINE HYDROCHLORIDE
     Dates: end: 20180828
  3. TAXOL [Suspect]
     Active Substance: PACLITAXEL
     Dates: end: 20180828

REACTIONS (16)
  - Feeling abnormal [None]
  - Middle insomnia [None]
  - Paraesthesia [None]
  - Paraesthesia [None]
  - Asthenia [None]
  - Fine motor skill dysfunction [None]
  - Dysstasia [None]
  - Gait disturbance [None]
  - NIH stroke scale abnormal [None]
  - Ataxia [None]
  - Sensory loss [None]
  - Cerebral infarction [None]
  - Hemiparesis [None]
  - Nasopharyngeal cancer recurrent [None]
  - Neutropenia [None]
  - Deafness [None]

NARRATIVE: CASE EVENT DATE: 20221008
